FAERS Safety Report 15658235 (Version 2)
Quarter: 2019Q1

REPORT INFORMATION
  Report Type: Report from Study
  Country: GR (occurrence: GR)
  Receive Date: 20181126
  Receipt Date: 20190128
  Transmission Date: 20190417
  Serious: Yes (Other)
  Sender: FDA-Public Use
  Company Number: GR-SAKK-2018SA315808AA

PATIENT
  Age: 82 Year
  Sex: Male

DRUGS (6)
  1. INSULIN GLARGINE [Suspect]
     Active Substance: INSULIN GLARGINE
     Dosage: DOSE REDUCED BY 2 UNITS
  2. SINTROM [Concomitant]
     Active Substance: ACENOCOUMAROL
  3. LEPUR [Concomitant]
     Active Substance: SIMVASTATIN
  4. INSULIN GLARGINE [Suspect]
     Active Substance: INSULIN GLARGINE
     Dosage: 32 U, QD
     Route: 058
  5. INSULIN GLARGINE [Suspect]
     Active Substance: INSULIN GLARGINE
     Indication: DIABETES MELLITUS
     Dosage: 12 U, QD
     Route: 058
  6. TRAJENTA [Concomitant]
     Active Substance: LINAGLIPTIN

REACTIONS (5)
  - Dizziness [Unknown]
  - Nasal injury [Unknown]
  - Blood glucose increased [Unknown]
  - Fall [Unknown]
  - Respiratory tract infection [Unknown]

NARRATIVE: CASE EVENT DATE: 20181114
